FAERS Safety Report 16108589 (Version 3)
Quarter: 2019Q2

REPORT INFORMATION
  Report Type: Spontaneous
  Country: JP (occurrence: JP)
  Receive Date: 20190323
  Receipt Date: 20190411
  Transmission Date: 20190711
  Serious: Yes (Life-Threatening, Hospitalization, Other)
  Sender: FDA-Public Use
  Company Number: JP-BAYER-2019-040064

PATIENT
  Age: 81 Year
  Sex: Female
  Weight: 61.7 kg

DRUGS (23)
  1. NEXAVAR [Suspect]
     Active Substance: SORAFENIB
     Indication: PAPILLARY THYROID CANCER
     Dosage: 200 MG, QD
     Route: 048
     Dates: start: 20180820, end: 20181226
  2. ALFACALCIDOL [Concomitant]
     Active Substance: ALFACALCIDOL
     Dosage: 0.5 ?G, QD
     Route: 048
     Dates: start: 200910
  3. ROSUVASTATIN. [Concomitant]
     Active Substance: ROSUVASTATIN
     Dosage: 5 MG, QD
     Route: 048
  4. NEOSTELIN GREEN [Concomitant]
     Active Substance: BENZETHONIUM CHLORIDE
     Dosage: UNK UNK, QID
  5. CELECOX [Concomitant]
     Active Substance: CELECOXIB
  6. AMLODIPINE [Concomitant]
     Active Substance: AMLODIPINE BESYLATE
     Dosage: 5 MG, QD
  7. RANMARK [Suspect]
     Active Substance: DENOSUMAB
     Dosage: UNK
     Dates: start: 20140923, end: 20181227
  8. HUMALOG [Concomitant]
     Active Substance: INSULIN LISPRO
     Indication: DIABETES MELLITUS
     Dosage: 6 U, TID
  9. ROZEREM [Concomitant]
     Active Substance: RAMELTEON
  10. LANTUS [Concomitant]
     Active Substance: INSULIN GLARGINE
     Indication: DIABETES MELLITUS
     Dosage: 6 U, QD
  11. NEXAVAR [Suspect]
     Active Substance: SORAFENIB
     Indication: PAPILLARY THYROID CANCER
     Dosage: DAILY DOSE 800MG
     Route: 048
     Dates: start: 20140911, end: 20141029
  12. NEXAVAR [Suspect]
     Active Substance: SORAFENIB
     Indication: METASTASES TO LYMPH NODES
     Dosage: 200 MG, QD
     Route: 048
     Dates: start: 20150219, end: 20180611
  13. CARVEDILOL. [Concomitant]
     Active Substance: CARVEDILOL
     Dosage: 10 MG, BID
  14. NEXAVAR [Suspect]
     Active Substance: SORAFENIB
     Indication: METASTASES TO LUNG
     Dosage: DAILY DOSE 400MG
     Route: 048
     Dates: start: 20141030, end: 20150218
  15. FEBURIC [Concomitant]
     Active Substance: FEBUXOSTAT
     Dosage: 10 MG, QD
     Route: 048
     Dates: start: 20171211
  16. CARVEDILOL. [Concomitant]
     Active Substance: CARVEDILOL
     Dosage: 2.5 MG, BID
  17. RABEPRAZOLE NA [Concomitant]
     Active Substance: RABEPRAZOLE SODIUM
     Dosage: 10 MG, QD
  18. NEXAVAR [Suspect]
     Active Substance: SORAFENIB
     Indication: PAPILLARY THYROID CANCER
     Dosage: 400 MG, DAILY
     Route: 048
     Dates: start: 20181227, end: 20190111
  19. ARICEPT [Concomitant]
     Active Substance: DONEPEZIL HYDROCHLORIDE
     Dosage: 5 MG, QD
     Route: 048
     Dates: start: 20100520
  20. LEVOTHYROXINE NA [Concomitant]
     Active Substance: LEVOTHYROXINE SODIUM
     Dosage: 125 ?G, QD
     Route: 048
     Dates: start: 200910
  21. CALONAL [Concomitant]
     Active Substance: ACETAMINOPHEN
     Dosage: 400 MG, TID
     Route: 048
     Dates: start: 20171127
  22. OLMESARTAN OD [Concomitant]
     Dosage: 20 MG, QD
  23. BELSOMRA [Concomitant]
     Active Substance: SUVOREXANT
     Dosage: 15 MG, QD

REACTIONS (23)
  - Pallor [Recovered/Resolved]
  - Wheezing [Recovered/Resolved]
  - Cardiac failure acute [Recovered/Resolved]
  - Diabetes mellitus inadequate control [None]
  - Contusion [None]
  - Chest pain [Recovered/Resolved]
  - Traumatic fracture [None]
  - Oedema peripheral [Recovered/Resolved]
  - Renal impairment [None]
  - Hyperuricaemia [Not Recovered/Not Resolved]
  - Dyspnoea [Recovered/Resolved]
  - Chest discomfort [Recovered/Resolved]
  - Cardiac failure acute [Recovered/Resolved]
  - Blood glucose decreased [None]
  - Malaise [Recovered/Resolved]
  - Cold sweat [Recovered/Resolved]
  - Metastases to lung [None]
  - Osteonecrosis of jaw [None]
  - Osteonecrosis of jaw [None]
  - Fall [None]
  - Anaemia [None]
  - Pyrexia [None]
  - Hyperhidrosis [Recovered/Resolved]

NARRATIVE: CASE EVENT DATE: 20160311
